FAERS Safety Report 25976915 (Version 1)
Quarter: 2025Q4

REPORT INFORMATION
  Report Type: Spontaneous
  Country: US (occurrence: US)
  Receive Date: 20251030
  Receipt Date: 20251030
  Transmission Date: 20260117
  Serious: Yes (Other)
  Sender: TEVA
  Company Number: US-TEVA-VS-3384161

PATIENT
  Age: 44 Year
  Sex: Male

DRUGS (1)
  1. LORAZEPAM [Suspect]
     Active Substance: LORAZEPAM
     Indication: Anxiety
     Route: 048

REACTIONS (5)
  - Presyncope [Unknown]
  - Product quality issue [Unknown]
  - Adverse drug reaction [Unknown]
  - Anxiety [Unknown]
  - Heart rate irregular [Unknown]
